FAERS Safety Report 9557643 (Version 1)
Quarter: 2013Q3

REPORT INFORMATION
  Report Type: Report from Study
  Country: HU (occurrence: HU)
  Receive Date: 20130926
  Receipt Date: 20130926
  Transmission Date: 20140515
  Serious: Yes (Hospitalization)
  Sender: FDA-Public Use
  Company Number: HU-GLAXOSMITHKLINE-B0925333A

PATIENT
  Sex: Male

DRUGS (4)
  1. SERETIDE [Suspect]
     Indication: CHRONIC OBSTRUCTIVE PULMONARY DISEASE
     Dosage: 1PUFF TWICE PER DAY
     Route: 055
     Dates: start: 2009, end: 201307
  2. FUROSEMID [Concomitant]
     Dosage: 40MG PER DAY
     Dates: start: 2006
  3. THEOSPIREX [Concomitant]
     Dosage: 150MG TWICE PER DAY
     Dates: start: 2009
  4. KALDYUM [Concomitant]
     Dates: start: 2006

REACTIONS (2)
  - Leukaemia [Not Recovered/Not Resolved]
  - Anaemia [Not Recovered/Not Resolved]
